FAERS Safety Report 23549773 (Version 1)
Quarter: 2024Q1

REPORT INFORMATION
  Report Type: Spontaneous
  Country: US (occurrence: None)
  Receive Date: 20240220
  Receipt Date: 20240220
  Transmission Date: 20240410
  Serious: Yes (Other)
  Sender: FDA-Public Use
  Company Number: None

PATIENT
  Age: 39 Year
  Sex: Female
  Weight: 51.75 kg

DRUGS (1)
  1. HUMIRA [Suspect]
     Active Substance: ADALIMUMAB
     Indication: Ankylosing spondylitis
     Dosage: BI-WEEKLY SUBCUTANEOUS INJECTION
     Route: 050
     Dates: start: 20231029, end: 20240207

REACTIONS (15)
  - Urinary tract infection [None]
  - Stomatitis [None]
  - Vulvovaginal inflammation [None]
  - Headache [None]
  - Head discomfort [None]
  - Constipation [None]
  - Dizziness [None]
  - Dizziness [None]
  - Blood pressure increased [None]
  - Heart rate increased [None]
  - Rhinalgia [None]
  - Insomnia [None]
  - Epistaxis [None]
  - Bone pain [None]
  - Confusional state [None]

NARRATIVE: CASE EVENT DATE: 20240217
